FAERS Safety Report 10597157 (Version 1)
Quarter: 2014Q4

REPORT INFORMATION
  Report Type: Spontaneous
  Country: FR (occurrence: FR)
  Receive Date: 20141121
  Receipt Date: 20141121
  Transmission Date: 20150529
  Serious: Yes (Life-Threatening)
  Sender: FDA-Public Use
  Company Number: FR-ROCHE-1492097

PATIENT
  Age: 45 Year
  Sex: Male

DRUGS (15)
  1. DOBUTAMINE [Concomitant]
     Active Substance: DOBUTAMINE\DOBUTAMINE HYDROCHLORIDE
  2. NORADRENALIN [Concomitant]
     Active Substance: NOREPINEPHRINE\NOREPINEPHRINE BITARTRATE
  3. FLUOROURACILE [Concomitant]
     Active Substance: FLUOROURACIL
     Indication: INTESTINAL ADENOCARCINOMA
     Route: 042
     Dates: start: 20140701, end: 20140703
  4. TAZOCILLINE [Concomitant]
     Active Substance: PIPERACILLIN SODIUM\TAZOBACTAM SODIUM
  5. ZYVOXID [Concomitant]
     Active Substance: LINEZOLID
  6. SPASFON (FRANCE) [Concomitant]
     Active Substance: PHLOROGLUCINOL
     Route: 065
  7. IRINOTECAN [Concomitant]
     Active Substance: IRINOTECAN
     Indication: INTESTINAL ADENOCARCINOMA
     Route: 042
     Dates: start: 20140701, end: 20140703
  8. FOLINIC ACID [Concomitant]
     Active Substance: LEUCOVORIN
     Indication: INTESTINAL ADENOCARCINOMA
     Route: 042
     Dates: start: 20140701, end: 20140703
  9. INEXIUM [Concomitant]
     Active Substance: ESOMEPRAZOLE
     Route: 065
  10. PARACETAMOL [Concomitant]
     Active Substance: ACETAMINOPHEN
     Route: 065
  11. VOGALENE [Concomitant]
     Active Substance: METOPIMAZINE
     Route: 065
  12. FUROSEMIDE. [Concomitant]
     Active Substance: FUROSEMIDE
     Indication: INTESTINAL ADENOCARCINOMA
     Route: 065
     Dates: start: 20140701, end: 20140703
  13. CANCIDAS [Concomitant]
     Active Substance: CASPOFUNGIN ACETATE
  14. ACETYLSALICYLIC ACID [Concomitant]
     Active Substance: ASPIRIN
  15. AVASTIN [Suspect]
     Active Substance: BEVACIZUMAB
     Indication: INTESTINAL ADENOCARCINOMA
     Route: 042
     Dates: start: 20140701, end: 20140703

REACTIONS (1)
  - Acute coronary syndrome [Not Recovered/Not Resolved]

NARRATIVE: CASE EVENT DATE: 20140706
